FAERS Safety Report 16862001 (Version 1)
Quarter: 2019Q3

REPORT INFORMATION
  Report Type: Spontaneous
  Country: FR (occurrence: FR)
  Receive Date: 20190927
  Receipt Date: 20190927
  Transmission Date: 20191005
  Serious: Yes (Hospitalization)
  Sender: FDA-Public Use
  Company Number: FR-MYLANLABS-2019M1089333

PATIENT
  Age: 64 Year
  Sex: Male
  Weight: 72.3 kg

DRUGS (10)
  1. CIPROFLOXACIN. [Suspect]
     Active Substance: CIPROFLOXACIN
     Indication: SERRATIA SEPSIS
     Dosage: 1000 MILLIGRAM, QD
     Route: 048
     Dates: start: 20190222, end: 20190304
  2. SPECIAFOLDINE [Concomitant]
     Active Substance: FOLIC ACID
     Dosage: UNK
  3. GAVISCON                           /00237601/ [Concomitant]
     Active Substance: ALUMINUM HYDROXIDE\MAGNESIUM CARBONATE
     Dosage: UNK
  4. CISPLATINE ACCORD [Suspect]
     Active Substance: CISPLATIN
     Indication: PROSTATE CANCER
     Dosage: 37 MILLIGRAM, CYCLE
     Route: 042
     Dates: start: 20190211, end: 20190215
  5. ZYMAD [Concomitant]
     Active Substance: CHOLECALCIFEROL
     Dosage: UNK
  6. BLEOMYCINE BELLON [Interacting]
     Active Substance: BLEOMYCIN SULFATE
     Indication: PROSTATE CANCER
     Dosage: 30 MILLIGRAM (15 DAY)
     Route: 042
     Dates: start: 20190211, end: 20190225
  7. BROMAZEPAM [Concomitant]
     Active Substance: BROMAZEPAM
     Dosage: UNK
  8. ETOPOSIDE MYLAN [Suspect]
     Active Substance: ETOPOSIDE
     Indication: PROSTATE CANCER
     Dosage: 184 MILLIGRAM, CYCLE
     Route: 042
     Dates: start: 20190211
  9. AMIKACINE MYLAN 250 MG, POUDRE POUR SOLUTION INJECTABLE [Suspect]
     Active Substance: AMIKACIN
     Indication: SERRATIA SEPSIS
     Dosage: 250 MILLIGRAM, QD
     Route: 042
     Dates: start: 20190222, end: 20190304
  10. ZARZIO [Interacting]
     Active Substance: FILGRASTIM
     Indication: NEUTROPENIA
     Dosage: 1 DOSAGE FORM, QD
     Route: 058
     Dates: start: 20190223

REACTIONS (1)
  - Lung disorder [Not Recovered/Not Resolved]

NARRATIVE: CASE EVENT DATE: 20190304
